FAERS Safety Report 9642500 (Version 1)
Quarter: 2013Q4

REPORT INFORMATION
  Report Type: Spontaneous
  Country: DE (occurrence: None)
  Receive Date: 20131021
  Receipt Date: 20131021
  Transmission Date: 20140711
  Serious: Yes (Other)
  Sender: FDA-Public Use
  Company Number: 1310-1310

PATIENT
  Sex: Male

DRUGS (1)
  1. EYLEA [Suspect]

REACTIONS (2)
  - Post procedural haemorrhage [None]
  - Eye haemorrhage [None]
